FAERS Safety Report 5066560-5 (Version None)
Quarter: 2006Q3

REPORT INFORMATION
  Report Type: 
  Country: None (occurrence: None)
  Receive Date: 20060801
  Receipt Date: 20060516
  Transmission Date: 20061208
  Serious: Yes (Hospitalization, Other)
  Sender: FDA-Public Use
  Company Number: DE-ABBOTT-06P-062-0333283-00

PATIENT
  Sex: Female

DRUGS (7)
  1. LIPIDIL [Suspect]
     Indication: DYSLIPIDAEMIA
     Route: 048
  2. PANTOZOL [Suspect]
     Indication: GASTRITIS
     Route: 048
     Dates: start: 20020101, end: 20060101
  3. PANTOZOL [Suspect]
     Indication: DUODENITIS
     Route: 048
     Dates: start: 20060101
  4. PANTOZOL [Suspect]
     Indication: GASTROOESOPHAGEAL REFLUX DISEASE
     Route: 048
     Dates: start: 19990101
  5. EPROSARTAN [Concomitant]
     Indication: ESSENTIAL HYPERTENSION
     Route: 048
  6. LEVOTHYROXINE SODIUM [Concomitant]
     Indication: HYPOTHYROIDISM
     Route: 048
  7. YENTEVE [Concomitant]
     Indication: STRESS URINARY INCONTINENCE

REACTIONS (8)
  - BLOOD PRESSURE DIASTOLIC DECREASED [None]
  - BLOOD PRESSURE DIASTOLIC INCREASED [None]
  - BLOOD PRESSURE SYSTOLIC INCREASED [None]
  - CATARACT [None]
  - EYE PAIN [None]
  - GLAUCOMA [None]
  - OPTIC ATROPHY [None]
  - VISUAL FIELD DEFECT [None]
